FAERS Safety Report 9777610 (Version 1)
Quarter: 2013Q4

REPORT INFORMATION
  Report Type: Report from Study
  Country: CA (occurrence: CA)
  Receive Date: 20131222
  Receipt Date: 20131222
  Transmission Date: 20140711
  Serious: Yes (Death, Other)
  Sender: FDA-Public Use
  Company Number: CA-ROCHE-1321734

PATIENT
  Age: 60 Year
  Sex: Male

DRUGS (9)
  1. XELODA [Suspect]
     Indication: GASTROINTESTINAL CARCINOMA
     Route: 048
     Dates: start: 20130615, end: 20131024
  2. XELODA [Suspect]
     Indication: COLORECTAL CANCER
  3. CODEINE [Concomitant]
  4. MORPHINE [Concomitant]
  5. RESTORALAX [Concomitant]
  6. YOGURT [Concomitant]
     Route: 065
  7. GINSENG [Concomitant]
  8. MODUCARE [Concomitant]
  9. VITAMIN C [Concomitant]

REACTIONS (9)
  - Death [Fatal]
  - Drug ineffective [Unknown]
  - Inflammation [Unknown]
  - White blood cell count decreased [Unknown]
  - Chest pain [Unknown]
  - Asthenia [Unknown]
  - Eating disorder [Unknown]
  - Hallucination [Unknown]
  - Arthritis [Unknown]
